FAERS Safety Report 6766850-1 (Version None)
Quarter: 2010Q2

REPORT INFORMATION
  Report Type: 
  Country: None (occurrence: None)
  Receive Date: 20100611
  Receipt Date: 20100601
  Transmission Date: 20101027
  Serious: Yes (Death, Other)
  Sender: FDA-Public Use
  Company Number: JP-WATSON-2010-06662

PATIENT
  Age: 79 Year
  Sex: Female

DRUGS (4)
  1. FLUOROURACIL [Suspect]
     Indication: COLON CANCER METASTATIC
     Dosage: 400 MG/M2 IV BOLUS DAY 1, 2400 MG/M2, 46 HOUR INFUSION EVERY 2 WEEKS
     Route: 042
     Dates: start: 20060101
  2. FLUOROURACIL [Suspect]
     Dosage: 400 MG/M2, IV BOLUS DAY 1, 600 MG/M2 CONTINUOUS INFUSION EVERY TWO WEEKS
     Route: 042
     Dates: start: 20060101
  3. OXALIPLATIN [Suspect]
     Indication: COLON CANCER METASTATIC
     Dosage: 85MG/M2 DAYS 1 AND 2
     Route: 042
     Dates: start: 20060101
  4. FOLINIC ACID [Concomitant]
     Indication: COLON CANCER METASTATIC
     Dosage: 200 MG/M2 DAYS 1 AND 2
     Route: 042
     Dates: start: 20060101

REACTIONS (5)
  - ALTERED STATE OF CONSCIOUSNESS [None]
  - CONDITION AGGRAVATED [None]
  - DRUG INEFFECTIVE [None]
  - HEPATIC FUNCTION ABNORMAL [None]
  - HYPERAMMONAEMIA [None]
